FAERS Safety Report 17120844 (Version 1)
Quarter: 2019Q4

REPORT INFORMATION
  Report Type: Spontaneous
  Country: US (occurrence: US)
  Receive Date: 20191206
  Receipt Date: 20191206
  Transmission Date: 20200122
  Serious: No
  Sender: FDA-Public Use
  Company Number: US-UCBSA-2017020394

PATIENT
  Age: 36 Year
  Sex: Female
  Weight: 61.2 kg

DRUGS (3)
  1. CIMZIA [Suspect]
     Active Substance: CERTOLIZUMAB PEGOL
     Indication: CONNECTIVE TISSUE DISORDER
     Dosage: 200 MG, UNK
     Dates: start: 20170421, end: 20170502
  2. TYLENOL [Concomitant]
     Active Substance: ACETAMINOPHEN
     Indication: CONNECTIVE TISSUE DISORDER
  3. ROBAXIN [Concomitant]
     Active Substance: METHOCARBAMOL
     Indication: CONNECTIVE TISSUE DISORDER

REACTIONS (4)
  - Pruritus [Recovering/Resolving]
  - Erythema [Recovering/Resolving]
  - Blister [Recovering/Resolving]
  - Intentional product misuse [Unknown]

NARRATIVE: CASE EVENT DATE: 20170421
